FAERS Safety Report 5411043-3 (Version None)
Quarter: 2007Q3

REPORT INFORMATION
  Report Type: 
  Country: None (occurrence: None)
  Receive Date: 20070810
  Receipt Date: 20070802
  Transmission Date: 20080115
  Serious: Yes (Other)
  Sender: FDA-Public Use
  Company Number: CN-JNJFOC-20060806530

PATIENT
  Sex: Female

DRUGS (2)
  1. GYNO-DAKTARIN [Suspect]
     Route: 067
     Dates: start: 20060804, end: 20060818
  2. GYNO-DAKTARIN [Suspect]
     Indication: VAGINAL CANDIDIASIS
     Route: 067
     Dates: start: 20060804, end: 20060818

REACTIONS (2)
  - ABORTION SPONTANEOUS [None]
  - DRUG EXPOSURE DURING PREGNANCY [None]
